FAERS Safety Report 7516608-0 (Version None)
Quarter: 2011Q2

REPORT INFORMATION
  Report Type: 
  Country: None (occurrence: None)
  Receive Date: 20110428
  Receipt Date: 20100601
  Transmission Date: 20111010
  Serious: Yes (Other)
  Sender: FDA-Public Use
  Company Number: THYM-1001530

PATIENT
  Sex: Female

DRUGS (8)
  1. THYMOGLOBULIN [Suspect]
     Indication: PROPHYLAXIS AGAINST TRANSPLANT REJECTION
     Dosage: 100 MG, QD, INTRAVENOUS; 125 MG, QD, INTRAVENOUS
     Route: 042
     Dates: start: 20100406, end: 20100406
  2. THYMOGLOBULIN [Suspect]
     Indication: PROPHYLAXIS AGAINST TRANSPLANT REJECTION
     Dosage: 100 MG, QD, INTRAVENOUS; 125 MG, QD, INTRAVENOUS
     Route: 042
     Dates: start: 20100407, end: 20100409
  3. THYMOGLOBULIN [Suspect]
  4. MYCOPHENOLIC ACID [Concomitant]
  5. PROGRAF [Concomitant]
  6. SOLU-MEDROL [Concomitant]
  7. PREDNISONE [Concomitant]
  8. BACTRIM [Concomitant]

REACTIONS (2)
  - KIDNEY TRANSPLANT REJECTION [None]
  - DRUG INEFFECTIVE [None]
